FAERS Safety Report 20306623 (Version 3)
Quarter: 2022Q1

REPORT INFORMATION
  Report Type: Report from Study
  Country: CL (occurrence: CL)
  Receive Date: 20220106
  Receipt Date: 20220323
  Transmission Date: 20220423
  Serious: Yes (Other)
  Sender: FDA-Public Use
  Company Number: CL-BAYER-2021A275559

PATIENT
  Age: 49 Year
  Sex: Female

DRUGS (3)
  1. VENTAVIS [Suspect]
     Active Substance: ILOPROST
     Indication: Pulmonary hypertension
     Dosage: 1 ML, Q8HR
     Route: 055
     Dates: start: 20200302
  2. OXYGEN [Concomitant]
     Active Substance: OXYGEN
     Dosage: 1 L, HS
     Dates: end: 20211021
  3. OXYGEN [Concomitant]
     Active Substance: OXYGEN
     Dosage: 2 L, HS
     Dates: start: 20211021

REACTIONS (9)
  - Pulmonary hypertension [Not Recovered/Not Resolved]
  - Hypoxia [Not Recovered/Not Resolved]
  - Fatigue [Not Recovered/Not Resolved]
  - Dyspnoea [Not Recovered/Not Resolved]
  - Drug ineffective [Not Recovered/Not Resolved]
  - Amnesia [Not Recovered/Not Resolved]
  - Inappropriate schedule of product administration [Not Recovered/Not Resolved]
  - Device issue [Not Recovered/Not Resolved]
  - Device use error [Not Recovered/Not Resolved]

NARRATIVE: CASE EVENT DATE: 20200301
